FAERS Safety Report 10472995 (Version 2)
Quarter: 2014Q3

REPORT INFORMATION
  Report Type: Spontaneous
  Country: DE (occurrence: DE)
  Receive Date: 20140924
  Receipt Date: 20140930
  Transmission Date: 20150326
  Serious: Yes (Hospitalization)
  Sender: FDA-Public Use
  Company Number: DE-JNJFOC-20140916304

PATIENT
  Age: 56 Year
  Sex: Male
  Weight: 110 kg

DRUGS (3)
  1. REMICADE [Suspect]
     Active Substance: INFLIXIMAB
     Indication: ANKYLOSING SPONDYLITIS
     Route: 042
     Dates: start: 20050406, end: 20140709
  2. RAMIPRIL. [Concomitant]
     Active Substance: RAMIPRIL
     Indication: ANKYLOSING SPONDYLITIS
     Route: 065
     Dates: start: 20100208
  3. REMICADE [Suspect]
     Active Substance: INFLIXIMAB
     Indication: ANKYLOSING SPONDYLITIS
     Route: 042
     Dates: start: 20140709

REACTIONS (2)
  - Plasmacytoma [Recovering/Resolving]
  - Pancoast^s tumour [Unknown]

NARRATIVE: CASE EVENT DATE: 20140828
